FAERS Safety Report 10344136 (Version 1)
Quarter: 2014Q3

REPORT INFORMATION
  Report Type: Spontaneous
  Country: US (occurrence: None)
  Receive Date: 20140724
  Receipt Date: 20140724
  Transmission Date: 20150326
  Serious: Yes (Life-Threatening, Hospitalization, Disabling)
  Sender: FDA-Public Use
  Company Number: None

PATIENT
  Age: 53 Year
  Sex: Male
  Weight: 99.79 kg

DRUGS (1)
  1. ANDROGEL [Suspect]
     Active Substance: TESTOSTERONE
     Indication: BLOOD TESTOSTERONE DECREASED
     Dosage: APPLY 4 PUMPS  ONCE DAILY APPLY TO AS SURFACE, USUALLY THE SKIN.
     Route: 061
     Dates: start: 20060601, end: 20140328

REACTIONS (12)
  - Bronchitis [None]
  - Panic attack [None]
  - Pulmonary embolism [None]
  - Productive cough [None]
  - Lacrimation increased [None]
  - Rhinorrhoea [None]
  - Dizziness postural [None]
  - Fall [None]
  - Pulmonary hypertension [None]
  - Cardiomegaly [None]
  - Dyspnoea [None]
  - Traumatic lung injury [None]

NARRATIVE: CASE EVENT DATE: 20140328
